FAERS Safety Report 8323080-X (Version None)
Quarter: 2012Q2

REPORT INFORMATION
  Report Type: 
  Country: None (occurrence: None)
  Receive Date: 20120430
  Receipt Date: 20120416
  Transmission Date: 20120825
  Serious: Yes (Hospitalization, Other)
  Sender: FDA-Public Use
  Company Number: US-ACTELION-A-US2011-45594

PATIENT

DRUGS (35)
  1. OXYGEN [Concomitant]
  2. PROVEX CV [Concomitant]
  3. FLOMAX [Concomitant]
  4. NEXIUM [Concomitant]
  5. REGLAN [Concomitant]
  6. GLUCOSAMINE [Concomitant]
  7. LANTUS [Concomitant]
  8. APIDRA [Concomitant]
  9. ALLEGRA [Concomitant]
  10. VICODIN [Concomitant]
  11. THEOPHYLLINE [Concomitant]
  12. CALCIUM [Concomitant]
  13. PERCOCET [Concomitant]
  14. PRAVASTATIN [Concomitant]
  15. PRADAXA [Concomitant]
  16. ADVAIR DISKUS 100/50 [Concomitant]
  17. JANUMET [Concomitant]
  18. BETHANECHOL [Concomitant]
  19. FLONASE [Concomitant]
  20. INDOMETHACIN [Concomitant]
  21. TRACLEER [Suspect]
     Indication: PULMONARY ARTERIAL HYPERTENSION
     Dosage: 125 MG, BID
     Route: 048
     Dates: start: 20100929
  22. FLEXERIL [Concomitant]
  23. VITAMIN D [Concomitant]
  24. REVATIO [Concomitant]
  25. PLAVIX [Concomitant]
  26. COMBIVENT [Concomitant]
  27. FISH OIL [Concomitant]
  28. NORVASC [Concomitant]
  29. ALDACTAZIDE [Concomitant]
  30. ZOCOR [Concomitant]
  31. DUONEB [Concomitant]
  32. LASIX [Concomitant]
  33. ASPIRIN [Concomitant]
  34. ALLOPURINOL [Concomitant]
  35. VITAMIN B-12 [Concomitant]

REACTIONS (24)
  - GASTRIC CANCER [None]
  - LYMPHOMA [None]
  - RENAL TUBULAR NECROSIS [None]
  - GOUT [None]
  - CHRONIC OBSTRUCTIVE PULMONARY DISEASE [None]
  - URINARY TRACT INFECTION [None]
  - HYPERGLYCAEMIA [None]
  - URINARY RETENTION [None]
  - DIZZINESS [None]
  - CHEMOTHERAPY [None]
  - ANAEMIA [None]
  - ASTHENIA [None]
  - VARICOSE VEIN [None]
  - RENAL FAILURE ACUTE [None]
  - TUBULOINTERSTITIAL NEPHRITIS [None]
  - HYPONATRAEMIA [None]
  - TREATMENT NONCOMPLIANCE [None]
  - ULCER HAEMORRHAGE [None]
  - PYURIA [None]
  - CARDIAC FAILURE CONGESTIVE [None]
  - BREAST MASS [None]
  - GASTROINTESTINAL HAEMORRHAGE [None]
  - MENTAL STATUS CHANGES [None]
  - CONFUSIONAL STATE [None]
